FAERS Safety Report 5960777-0 (Version None)
Quarter: 2008Q4

REPORT INFORMATION
  Report Type: 
  Country: None (occurrence: None)
  Receive Date: 20081120
  Receipt Date: 20081107
  Transmission Date: 20090506
  Serious: Yes (Other)
  Sender: FDA-Public Use
  Company Number: PHBS2008JP05692

PATIENT
  Age: 59 Year
  Sex: Male

DRUGS (2)
  1. IMATINIB MESYLATE [Suspect]
     Indication: CHRONIC MYELOID LEUKAEMIA
     Dosage: 400 MG, UNK
     Route: 048
     Dates: start: 20050601
  2. IMATINIB MESYLATE [Suspect]
     Dosage: 800 MG, UNK
     Route: 048

REACTIONS (4)
  - CORD BLOOD TRANSPLANT THERAPY [None]
  - DRUG INEFFECTIVE [None]
  - DRUG RESISTANCE [None]
  - MALIGNANT NEOPLASM PROGRESSION [None]
